FAERS Safety Report 7527615-6 (Version None)
Quarter: 2011Q2

REPORT INFORMATION
  Report Type: 
  Country: None (occurrence: None)
  Receive Date: 20110607
  Receipt Date: 20110531
  Transmission Date: 20111010
  Serious: No
  Sender: FDA-Public Use
  Company Number: US-PFIZER INC-2011118959

PATIENT
  Sex: Female
  Weight: 102 kg

DRUGS (9)
  1. AZITHROMYCIN [Suspect]
     Indication: TOOTH DISORDER
  2. XANAX [Concomitant]
     Indication: DEPRESSION
  3. EFFEXOR [Concomitant]
     Indication: DEPRESSION
     Dosage: 75 MG, 2X/DAY
  4. SYNTHROID [Concomitant]
     Dosage: 0.25 MG, DAILY
     Route: 048
     Dates: start: 20110301, end: 20110303
  5. XANAX [Concomitant]
     Indication: PANIC DISORDER
     Dosage: 0.25 MG, 3X/DAY
     Route: 048
  6. CLINDAMYCIN HCL [Suspect]
     Indication: TOOTH DISORDER
     Dosage: 150 MG, 3X/DAY
     Dates: start: 20110523, end: 20110526
  7. LEVOTHYROXINE SODIUM [Concomitant]
     Dosage: 0.25 MG, DAILY
     Dates: start: 20110222, end: 20110101
  8. AZITHROMYCIN [Suspect]
     Indication: SINUSITIS
     Dosage: UNK
  9. CLINDAMYCIN HCL [Suspect]
     Indication: SINUSITIS
     Dosage: UNK
     Route: 048
     Dates: start: 20090812, end: 20090901

REACTIONS (1)
  - DRUG INEFFECTIVE [None]
